FAERS Safety Report 8890111 (Version 1)
Quarter: 2012Q4

REPORT INFORMATION
  Report Type: 
  Country: CA (occurrence: CA)
  Receive Date: 20121106
  Receipt Date: 20121106
  Transmission Date: 20130627
  Serious: Yes (Other)
  Sender: FDA-Public Use
  Company Number: PHMT2006CA01343

PATIENT
  Sex: Female

DRUGS (7)
  1. ZOMETA [Suspect]
     Indication: BREAST CANCER
     Dosage: 4 mg, QMO
     Route: 042
     Dates: start: 20051213
  2. APO-ALLOPURINOL [Concomitant]
  3. DILAUDID [Concomitant]
  4. DOMPERIDONE [Concomitant]
  5. FRAGMIN [Concomitant]
  6. GABAPENTIN [Concomitant]
  7. MEGACE [Concomitant]

REACTIONS (2)
  - Spinal fracture [Unknown]
  - Malaise [Unknown]
